FAERS Safety Report 5354742-4 (Version None)
Quarter: 2007Q2

REPORT INFORMATION
  Report Type: 
  Country: None (occurrence: None)
  Receive Date: 20070612
  Receipt Date: 20070602
  Transmission Date: 20071010
  Serious: Yes (Other)
  Sender: FDA-Public Use
  Company Number: US-PFIZER INC-2007045153

PATIENT
  Sex: Male
  Weight: 92.727 kg

DRUGS (5)
  1. LYRICA [Suspect]
     Indication: BACK PAIN
  2. MOBIC [Concomitant]
  3. PREDNISOLONE [Concomitant]
  4. OXYCODONE HCL [Concomitant]
  5. HYDROCODONE BITARTRATE [Concomitant]

REACTIONS (1)
  - BACK PAIN [None]
